FAERS Safety Report 13105735 (Version 2)
Quarter: 2017Q1

REPORT INFORMATION
  Report Type: Spontaneous
  Country: US (occurrence: US)
  Receive Date: 20170111
  Receipt Date: 20170223
  Transmission Date: 20170428
  Serious: Yes (Other)
  Sender: FDA-Public Use
  Company Number: US-FDC LIMITED-2016RIS00212

PATIENT
  Age: 82 Year
  Sex: Male
  Weight: 79.37 kg

DRUGS (9)
  1. WARFARIN [Concomitant]
     Active Substance: WARFARIN
  2. SIMBRINZA [Suspect]
     Active Substance: BRIMONIDINE TARTRATE\BRINZOLAMIDE
     Dosage: UNK, 2X/DAY IN THE MORNING AND AT NIGHT
  3. LATANOPROST. [Concomitant]
     Active Substance: LATANOPROST
     Dosage: UNK, 1X/DAY AT NIGHT
  4. PRESERVISION [Concomitant]
     Active Substance: MINERALS\VITAMINS
  5. OMEGA 3 FISH OIL [Concomitant]
     Active Substance: FISH OIL\OMEGA-3 FATTY ACIDS
  6. GABAPENTIN. [Concomitant]
     Active Substance: GABAPENTIN
  7. LISINOPRIL-HCTZ [Concomitant]
     Active Substance: HYDROCHLOROTHIAZIDE\LISINOPRIL
     Dosage: 1 TABLETS, 1X/DAY
     Route: 048
  8. TIMOLOL MALEATE. [Suspect]
     Active Substance: TIMOLOL MALEATE
     Indication: GLAUCOMA
     Dosage: 1 GTT, 1X/DAY IN THE MORNING IN BOTH EYES
     Route: 047
     Dates: start: 2015
  9. ATORVASTATIN [Concomitant]
     Active Substance: ATORVASTATIN

REACTIONS (4)
  - Cataract operation [Unknown]
  - Hypertension [Unknown]
  - Abnormal sensation in eye [Unknown]
  - Drug administration error [Unknown]

NARRATIVE: CASE EVENT DATE: 201606
